FAERS Safety Report 26011131 (Version 1)
Quarter: 2025Q4

REPORT INFORMATION
  Report Type: Spontaneous
  Country: US (occurrence: None)
  Receive Date: 20251106
  Receipt Date: 20251106
  Transmission Date: 20260117
  Serious: No
  Sender: FDA-CTU
  Company Number: None

PATIENT
  Sex: Female

DRUGS (1)
  1. EVEROLIMUS [Suspect]
     Active Substance: EVEROLIMUS
     Indication: Malignant neoplasm of orbit
     Dosage: 10 MG DAILY FOR 1 WEEK ORAL
     Route: 048
     Dates: start: 20240117

REACTIONS (7)
  - Fatigue [None]
  - Eyelid tumour [None]
  - Suture rupture [None]
  - Bone marrow disorder [None]
  - Platelet count decreased [None]
  - White blood cell count decreased [None]
  - Post procedural complication [None]
